FAERS Safety Report 12349832 (Version 1)
Quarter: 2016Q2

REPORT INFORMATION
  Report Type: Report from Study
  Country: US (occurrence: US)
  Receive Date: 20160510
  Receipt Date: 20160510
  Transmission Date: 20160815
  Serious: No
  Sender: FDA-Public Use
  Company Number: PHEH2016US010772

PATIENT
  Sex: Male

DRUGS (1)
  1. COSENTYX [Suspect]
     Active Substance: SECUKINUMAB
     Indication: PSORIASIS
     Dosage: 300 MG, QW
     Route: 058

REACTIONS (7)
  - Clostridium difficile infection [Recovering/Resolving]
  - Gastric disorder [Unknown]
  - Hordeolum [Unknown]
  - Pyrexia [Unknown]
  - Diarrhoea [Unknown]
  - Campylobacter infection [Recovering/Resolving]
  - Malaise [Unknown]
